FAERS Safety Report 5890196-7 (Version None)
Quarter: 2008Q3

REPORT INFORMATION
  Report Type: 
  Country: None (occurrence: None)
  Receive Date: 20080919
  Receipt Date: 20080908
  Transmission Date: 20090109
  Serious: Yes (Other)
  Sender: FDA-Public Use
  Company Number: US-PFIZER INC-2008075835

PATIENT
  Sex: Female
  Weight: 63.636 kg

DRUGS (5)
  1. LYRICA [Suspect]
     Indication: FIBROMYALGIA
     Dates: start: 20080701
  2. PROPRANOLOL [Concomitant]
  3. CELEXA [Concomitant]
  4. PRILOSEC [Concomitant]
  5. DILAUDID [Concomitant]

REACTIONS (3)
  - OEDEMA PERIPHERAL [None]
  - PAIN IN EXTREMITY [None]
  - SURGERY [None]
